FAERS Safety Report 6578694-4 (Version None)
Quarter: 2010Q1

REPORT INFORMATION
  Report Type: 
  Country: None (occurrence: None)
  Receive Date: 20100202
  Receipt Date: 20100119
  Transmission Date: 20100710
  Serious: Yes (Hospitalization)
  Sender: FDA-Public Use
  Company Number: 1000011544

PATIENT
  Age: 37 Year
  Sex: Female

DRUGS (4)
  1. ESCITALOPRAM [Suspect]
     Indication: ANXIETY
     Dosage: 10 MG (10 MG, 1 IN 1 D), ORAL
     Route: 048
     Dates: start: 20091027, end: 20091027
  2. DIOSMINE [Concomitant]
  3. PROCTOLOG [Concomitant]
  4. LYSANXIA [Concomitant]

REACTIONS (7)
  - ASTHENIA [None]
  - FEELING COLD [None]
  - MUSCULOSKELETAL STIFFNESS [None]
  - PYREXIA [None]
  - TREMOR [None]
  - VERTIGO [None]
  - VOMITING [None]
